FAERS Safety Report 20539583 (Version 1)
Quarter: 2022Q1

REPORT INFORMATION
  Report Type: Spontaneous
  Country: CA (occurrence: CA)
  Receive Date: 20220302
  Receipt Date: 20220302
  Transmission Date: 20220423
  Serious: Yes (Hospitalization)
  Sender: FDA-Public Use
  Company Number: CA-JNJFOC-20211109119

PATIENT
  Age: 43 Year
  Sex: Female

DRUGS (2)
  1. MICRONOR [Suspect]
     Active Substance: NORETHINDRONE
     Indication: Product used for unknown indication
     Route: 065
  2. TALTZ [Suspect]
     Active Substance: IXEKIZUMAB
     Indication: Product used for unknown indication
     Route: 065

REACTIONS (7)
  - Arthritis [Unknown]
  - Psoriasis [Unknown]
  - Thrombophlebitis [Unknown]
  - Migraine [Unknown]
  - Oedema [Unknown]
  - Overweight [Unknown]
  - Pain in extremity [Unknown]
